FAERS Safety Report 7555772-4 (Version None)
Quarter: 2011Q2

REPORT INFORMATION
  Report Type: 
  Country: None (occurrence: None)
  Receive Date: 20110618
  Receipt Date: 20110607
  Transmission Date: 20111010
  Serious: Yes (Hospitalization, Other)
  Sender: FDA-Public Use
  Company Number: US-BAYER-201011125NA

PATIENT
  Age: 33 Year
  Sex: Female
  Weight: 70.295 kg

DRUGS (11)
  1. ORLISTAT [Concomitant]
  2. DIETARY SUPPLEMENTS [Concomitant]
  3. YAZ [Suspect]
     Indication: PREMENSTRUAL SYNDROME
  4. TYLENOL-500 [Concomitant]
     Dosage: UNK UNK, PRN
  5. JOINT SUPPLEMENTS [Concomitant]
  6. YASMIN [Suspect]
     Indication: PRODUCT USED FOR UNKNOWN INDICATION
  7. MULTI-VITAMIN [Concomitant]
  8. AZITHROMYCIN [Concomitant]
     Dosage: UNK
     Dates: start: 20080725
  9. AMOXICILLIN [Concomitant]
     Dosage: UNK
     Dates: start: 20080729
  10. YAZ [Suspect]
     Indication: ACNE
  11. VITAMIN E [Concomitant]

REACTIONS (2)
  - PULMONARY EMBOLISM [None]
  - DEPRESSION [None]
